FAERS Safety Report 6268306-1 (Version None)
Quarter: 2009Q3

REPORT INFORMATION
  Report Type: 
  Country: None (occurrence: None)
  Receive Date: 20090715
  Receipt Date: 20071108
  Transmission Date: 20100115
  Serious: Yes (Other)
  Sender: FDA-Public Use
  Company Number: US-ASTRAZENECA-2006UW23673

PATIENT
  Age: 13586 Day
  Sex: Male

DRUGS (8)
  1. SEROQUEL [Suspect]
     Dosage: 100MG -400 MG
     Route: 048
     Dates: start: 20031223
  2. PAXIL [Concomitant]
     Route: 065
  3. LEXAPRO [Concomitant]
     Route: 065
  4. TRAZODONE [Concomitant]
     Dosage: 150MG-300MG
     Route: 065
  5. REMERON [Concomitant]
     Dosage: 30MG -45 MG
     Route: 065
  6. ZYPREXA [Concomitant]
     Dosage: 10 MG -20MG
     Route: 065
  7. CELEXA [Concomitant]
     Route: 065
  8. ACIPHEX [Concomitant]
     Route: 065

REACTIONS (1)
  - PANCREATITIS [None]
